FAERS Safety Report 4309526-2 (Version None)
Quarter: 2004Q1

REPORT INFORMATION
  Report Type: 
  Country: None (occurrence: None)
  Receive Date: 20040302
  Receipt Date: 20031119
  Transmission Date: 20041129
  Serious: Yes (Hospitalization)
  Sender: FDA-Public Use
  Company Number: PHBS2003JP12902

PATIENT
  Age: 46 Year
  Sex: Male

DRUGS (2)
  1. METOPIRONE [Suspect]
     Indication: PITUITARY-DEPENDENT CUSHING'S SYNDROME
     Dosage: 1 G/D
     Route: 065
  2. TRILOSTANE [Suspect]
     Dosage: 240 MG/D
     Route: 065

REACTIONS (4)
  - CARDIAC FAILURE CONGESTIVE [None]
  - DYSPNOEA EXACERBATED [None]
  - PITUITARY TUMOUR BENIGN [None]
  - PITUITARY TUMOUR REMOVAL [None]
